FAERS Safety Report 9406882 (Version 1)
Quarter: 2013Q3

REPORT INFORMATION
  Report Type: Report from Study
  Country: FR (occurrence: FR)
  Receive Date: 20130718
  Receipt Date: 20130718
  Transmission Date: 20140515
  Serious: Yes (Death, Other)
  Sender: FDA-Public Use
  Company Number: PHHO2013FR009284

PATIENT
  Age: 63 Year
  Sex: Male

DRUGS (8)
  1. AFINITOR [Suspect]
     Indication: URETHRAL CANCER METASTATIC
     Dosage: 10 MG, QD
     Route: 048
     Dates: start: 20111219, end: 20120124
  2. AFINITOR [Suspect]
     Dosage: UNK
     Dates: start: 20120124, end: 20120201
  3. AFINITOR [Suspect]
     Dosage: 5 MG, UNK
     Dates: start: 20120201, end: 20120210
  4. AFINITOR [Suspect]
     Dosage: UNK
     Dates: start: 20120210
  5. ACTISKENAN [Concomitant]
     Dosage: 2 MG, QD
     Dates: start: 20120229
  6. NEURONTIN [Concomitant]
     Dosage: UNK
     Dates: start: 20120229
  7. PERFALGAN [Concomitant]
     Dosage: UNK
     Dates: start: 20120229
  8. LASILIX [Concomitant]
     Dosage: UNK
     Dates: start: 20120229

REACTIONS (3)
  - Metastatic carcinoma of the bladder [Fatal]
  - Malignant neoplasm progression [Fatal]
  - Gamma-glutamyltransferase increased [Unknown]
